FAERS Safety Report 14672904 (Version 6)
Quarter: 2020Q3

REPORT INFORMATION
  Report Type: Report from Study
  Country: CN (occurrence: CN)
  Receive Date: 20180323
  Receipt Date: 20200715
  Transmission Date: 20201102
  Serious: Yes (Hospitalization)
  Sender: FDA-Public Use
  Company Number: CN-ROCHE-2087967

PATIENT
  Age: 63 Year
  Sex: Female
  Weight: 44 kg

DRUGS (66)
  1. LEUCOGEN (CHINA) [Concomitant]
     Dates: start: 20180226, end: 20180310
  2. CLOSTRIDIUM BUTYRICUM [Concomitant]
     Active Substance: CLOSTRIDIUM BUTYRICUM SPORES STRAIN M-55
     Dates: start: 20180211, end: 20180211
  3. CLOSTRIDIUM BUTYRICUM [Concomitant]
     Active Substance: CLOSTRIDIUM BUTYRICUM SPORES STRAIN M-55
     Dates: start: 20180226
  4. CLOSTRIDIUM BUTYRICUM [Concomitant]
     Active Substance: CLOSTRIDIUM BUTYRICUM SPORES STRAIN M-55
     Dates: start: 20180102
  5. DEXAMETHASONE. [Concomitant]
     Active Substance: DEXAMETHASONE
     Route: 048
     Dates: start: 20180226, end: 20180227
  6. DEXAMETHASONE. [Concomitant]
     Active Substance: DEXAMETHASONE
     Route: 048
     Dates: start: 20180322, end: 20180323
  7. GRANISETRON HYDROCHLORIDE. [Concomitant]
     Active Substance: GRANISETRON HYDROCHLORIDE
     Indication: VOMITING
     Dates: start: 20180226, end: 20180226
  8. GRANISETRON HYDROCHLORIDE. [Concomitant]
     Active Substance: GRANISETRON HYDROCHLORIDE
     Dates: start: 20180507, end: 20180507
  9. PROMETHAZINE HYDROCHLORIDE. [Concomitant]
     Active Substance: PROMETHAZINE HYDROCHLORIDE
     Dates: start: 20180413, end: 20180413
  10. HEPARIN SODIUM. [Concomitant]
     Active Substance: HEPARIN SODIUM
     Dates: start: 20180607, end: 20180607
  11. RECOMBINANT HUMAN INTERLEUKIN?11 [Concomitant]
     Active Substance: OPRELVEKIN
     Dates: start: 20180528, end: 20180528
  12. CIMETIDINE [Concomitant]
     Active Substance: CIMETIDINE
     Dates: start: 20180413, end: 20180413
  13. PROMETHAZINE HYDROCHLORIDE. [Concomitant]
     Active Substance: PROMETHAZINE HYDROCHLORIDE
     Indication: HYPERSENSITIVITY
     Dates: start: 20180226, end: 20180226
  14. CRAVIT [Concomitant]
     Active Substance: LEVOFLOXACIN
     Dates: start: 20180308, end: 20180310
  15. HEPARIN SODIUM. [Concomitant]
     Active Substance: HEPARIN SODIUM
     Dates: start: 20180223, end: 20180223
  16. HEPARIN SODIUM. [Concomitant]
     Active Substance: HEPARIN SODIUM
     Dates: start: 20180310, end: 20180316
  17. HEPARIN SODIUM. [Concomitant]
     Active Substance: HEPARIN SODIUM
     Dates: start: 20180413, end: 20180413
  18. INDOMETACIN [Concomitant]
     Active Substance: INDOMETHACIN
     Dates: start: 20180508, end: 20180508
  19. INDOMETACIN [Concomitant]
     Active Substance: INDOMETHACIN
     Dates: start: 20180509, end: 20180509
  20. CLOSTRIDIUM BUTYRICUM [Concomitant]
     Active Substance: CLOSTRIDIUM BUTYRICUM SPORES STRAIN M-55
     Dates: start: 20180129, end: 20180204
  21. CLOSTRIDIUM BUTYRICUM [Concomitant]
     Active Substance: CLOSTRIDIUM BUTYRICUM SPORES STRAIN M-55
     Dates: start: 20180504, end: 20180504
  22. RECOMBINANT HUMAN THROMBOPOIETIN [Concomitant]
     Active Substance: THROMBOPOIETIN
     Dates: start: 20180313, end: 20180313
  23. PACLITAXEL. [Suspect]
     Active Substance: PACLITAXEL
     Indication: MALIGNANT PERITONEAL NEOPLASM
     Dosage: THE MOST RECENT DOSE OF PACLITAXEL PRIOR TO SERIOUS ADVERSE EVENT WAS ON 26/FEB/2018 (245 MG)
     Route: 042
     Dates: start: 20180104
  24. CARBOPLATIN. [Suspect]
     Active Substance: CARBOPLATIN
     Indication: MALIGNANT PERITONEAL NEOPLASM
     Dosage: 6 MG/ML*MIN?THE MOST RECENT DOSE OF CARBOPLATIN PRIOR TO SERIOUS ADVERSE EVENT WAS ON 26/FEB/2018 (5
     Route: 042
     Dates: start: 20180104
  25. LEUCOGEN (CHINA) [Concomitant]
     Dates: start: 20180223, end: 20180310
  26. CLOSTRIDIUM BUTYRICUM [Concomitant]
     Active Substance: CLOSTRIDIUM BUTYRICUM SPORES STRAIN M-55
     Dates: start: 20180223, end: 20180319
  27. LACTULOSE. [Concomitant]
     Active Substance: LACTULOSE
     Indication: CONSTIPATION
     Dates: start: 20180227, end: 20180227
  28. LACTULOSE. [Concomitant]
     Active Substance: LACTULOSE
     Dates: start: 20180323, end: 20180323
  29. LACTULOSE. [Concomitant]
     Active Substance: LACTULOSE
     Dates: start: 20180413, end: 20180413
  30. POTASSIUM CHLORIDE. [Concomitant]
     Active Substance: POTASSIUM CHLORIDE
     Dates: start: 20180323, end: 20180323
  31. LEUCOGEN (CHINA) [Concomitant]
     Dates: start: 20180504, end: 20180504
  32. CLOSTRIDIUM BUTYRICUM [Concomitant]
     Active Substance: CLOSTRIDIUM BUTYRICUM SPORES STRAIN M-55
     Dates: start: 20180315
  33. CLOSTRIDIUM BUTYRICUM [Concomitant]
     Active Substance: CLOSTRIDIUM BUTYRICUM SPORES STRAIN M-55
     Dates: start: 20180322
  34. CLOSTRIDIUM BUTYRICUM [Concomitant]
     Active Substance: CLOSTRIDIUM BUTYRICUM SPORES STRAIN M-55
     Dates: start: 20180413, end: 20180413
  35. CIMETIDINE [Concomitant]
     Active Substance: CIMETIDINE
     Dates: start: 20180322, end: 20180322
  36. GRANISETRON HYDROCHLORIDE. [Concomitant]
     Active Substance: GRANISETRON HYDROCHLORIDE
     Dates: start: 20180413, end: 20180413
  37. POTASSIUM CHLORIDE. [Concomitant]
     Active Substance: POTASSIUM CHLORIDE
     Dates: start: 20180309
  38. ATEZOLIZUMAB. [Suspect]
     Active Substance: ATEZOLIZUMAB
     Indication: MALIGNANT PERITONEAL NEOPLASM
     Dosage: DAY 1 OF EACH 21?DAY CYCLE.?THE MOST RECENT DOSE OF ATEZOLIZUMAB WAS ON 26/FEB/2018.
     Route: 042
     Dates: start: 20180104
  39. BEVACIZUMAB. [Suspect]
     Active Substance: BEVACIZUMAB
     Indication: MALIGNANT PERITONEAL NEOPLASM
     Dosage: THE MOST RECENT DOSE OF BEVACIZUMAB PRIOR TO SERIOUS ADVERSE EVENT WAS ON 26/FEB/2018 (705 MG)
     Route: 042
     Dates: start: 20180129
  40. INDOMETACIN [Concomitant]
     Active Substance: INDOMETHACIN
     Dates: start: 20180414, end: 20180414
  41. INDOMETACIN [Concomitant]
     Active Substance: INDOMETHACIN
     Dates: start: 20180507, end: 20180507
  42. LEUCOGEN (CHINA) [Concomitant]
     Dates: start: 20180315
  43. DEXAMETHASONE. [Concomitant]
     Active Substance: DEXAMETHASONE
     Route: 048
     Dates: start: 20180321, end: 20180322
  44. CIMETIDINE [Concomitant]
     Active Substance: CIMETIDINE
     Dates: start: 20180226, end: 20180226
  45. POTASSIUM CHLORIDE. [Concomitant]
     Active Substance: POTASSIUM CHLORIDE
     Dates: start: 20180313, end: 20180316
  46. RECOMBINANT HUMAN THROMBOPOIETIN [Concomitant]
     Active Substance: THROMBOPOIETIN
     Dates: start: 20180402, end: 20180402
  47. HEPARIN SODIUM. [Concomitant]
     Active Substance: HEPARIN SODIUM
     Dates: start: 20180226, end: 20180226
  48. HEPARIN SODIUM. [Concomitant]
     Active Substance: HEPARIN SODIUM
     Dates: start: 20180228, end: 20180228
  49. HEPARIN SODIUM. [Concomitant]
     Active Substance: HEPARIN SODIUM
     Dates: start: 20180309, end: 20180309
  50. INDOMETACIN [Concomitant]
     Active Substance: INDOMETHACIN
     Dates: start: 20180323, end: 20180323
  51. RECOMBINANT HUMAN INTERLEUKIN?11 [Concomitant]
     Active Substance: OPRELVEKIN
     Indication: THROMBOCYTOPENIA
     Dates: start: 20180211, end: 20180211
  52. RECOMBINANT HUMAN INTERLEUKIN?11 [Concomitant]
     Active Substance: OPRELVEKIN
     Dates: start: 20180305, end: 20180310
  53. LEUCOGEN (CHINA) [Concomitant]
     Dates: start: 20180223, end: 20180310
  54. LEUCOGEN (CHINA) [Concomitant]
     Dates: start: 20180413, end: 20180413
  55. DEXAMETHASONE. [Concomitant]
     Active Substance: DEXAMETHASONE
     Route: 048
     Dates: start: 20180225, end: 20180226
  56. DEXAMETHASONE. [Concomitant]
     Active Substance: DEXAMETHASONE
     Route: 048
     Dates: start: 20180412, end: 20180413
  57. CIMETIDINE [Concomitant]
     Active Substance: CIMETIDINE
     Dates: start: 20180507, end: 20180507
  58. PROMETHAZINE HYDROCHLORIDE. [Concomitant]
     Active Substance: PROMETHAZINE HYDROCHLORIDE
     Dates: start: 20180507, end: 20180507
  59. POTASSIUM CHLORIDE. [Concomitant]
     Active Substance: POTASSIUM CHLORIDE
     Dates: start: 20180324, end: 20180324
  60. LEUCOGEN (CHINA) [Concomitant]
     Indication: WHITE BLOOD CELL COUNT INCREASED
     Dates: start: 20180105
  61. LEUCOGEN (CHINA) [Concomitant]
     Dates: start: 20180129, end: 20180213
  62. DEXAMETHASONE. [Concomitant]
     Active Substance: DEXAMETHASONE
     Route: 048
     Dates: start: 20180506, end: 20180507
  63. GRANISETRON HYDROCHLORIDE. [Concomitant]
     Active Substance: GRANISETRON HYDROCHLORIDE
     Dates: start: 20180322, end: 20180322
  64. PROMETHAZINE HYDROCHLORIDE. [Concomitant]
     Active Substance: PROMETHAZINE HYDROCHLORIDE
     Dates: start: 20180322, end: 20180322
  65. HEPARIN SODIUM. [Concomitant]
     Active Substance: HEPARIN SODIUM
     Dates: start: 20180323, end: 20180323
  66. HEPARIN SODIUM. [Concomitant]
     Active Substance: HEPARIN SODIUM
     Dates: start: 20180628, end: 20180628

REACTIONS (1)
  - Lower respiratory tract congestion [Recovered/Resolved]

NARRATIVE: CASE EVENT DATE: 20180306
